FAERS Safety Report 14347053 (Version 17)
Quarter: 2022Q1

REPORT INFORMATION
  Report Type: Spontaneous
  Country: US (occurrence: US)
  Receive Date: 20180103
  Receipt Date: 20220119
  Transmission Date: 20220423
  Serious: No
  Sender: FDA-Public Use
  Company Number: US-PFIZER INC-2017555366

PATIENT
  Age: 70 Year
  Sex: Female
  Weight: 72.5 kg

DRUGS (7)
  1. LYRICA [Suspect]
     Active Substance: PREGABALIN
     Indication: Pain
     Dosage: UNK, TWICE A DAY (2 TIMES A DAY, 8 IN THE MORNING AND AT 3 IN THE AFTERNOON)
     Dates: start: 2014
  2. LYRICA [Suspect]
     Active Substance: PREGABALIN
     Indication: Neuralgia
     Dosage: 150 MG, TWICE A DAY (ONE IN THE MORNING AND ONE IN THE EVENING)
     Route: 048
  3. LYRICA [Suspect]
     Active Substance: PREGABALIN
     Indication: Neck surgery
     Dosage: 150 MG, THREE TIMES A DAY
     Route: 048
  4. LYRICA [Suspect]
     Active Substance: PREGABALIN
     Indication: Tumour excision
  5. LYRICA [Suspect]
     Active Substance: PREGABALIN
     Indication: Neuralgia
  6. LYRICA [Suspect]
     Active Substance: PREGABALIN
     Indication: Neuritis
  7. LYRICA [Suspect]
     Active Substance: PREGABALIN
     Indication: Neuralgia

REACTIONS (11)
  - Dizziness [Unknown]
  - Pain [Not Recovered/Not Resolved]
  - Balance disorder [Not Recovered/Not Resolved]
  - Nasopharyngitis [Recovered/Resolved]
  - Memory impairment [Unknown]
  - Peripheral coldness [Unknown]
  - Headache [Unknown]
  - Hypertension [Unknown]
  - Musculoskeletal stiffness [Unknown]
  - Tension [Unknown]
  - Fear [Unknown]

NARRATIVE: CASE EVENT DATE: 20170101
